FAERS Safety Report 10089083 (Version 1)
Quarter: 2014Q2

REPORT INFORMATION
  Report Type: Spontaneous
  Country: US (occurrence: US)
  Receive Date: 20140421
  Receipt Date: 20140421
  Transmission Date: 20141212
  Serious: No
  Sender: FDA-Public Use
  Company Number: US-BAYER-2014-058331

PATIENT
  Age: 60 Year
  Sex: Male
  Weight: 97.51 kg

DRUGS (5)
  1. ALEVE TABLET [Suspect]
     Indication: MUSCULOSKELETAL PAIN
     Dosage: 1 DF, ONCE
     Route: 048
     Dates: start: 20140415, end: 20140415
  2. BYSTOLIC [Concomitant]
  3. LOSARTAN [Concomitant]
  4. BAYER ASPIRIN REGIMEN ADULT LOW STRENGTH [Concomitant]
  5. CENTRUM SILVER [Concomitant]

REACTIONS (3)
  - Insomnia [Recovered/Resolved]
  - Initial insomnia [Recovered/Resolved]
  - Pruritus [Recovered/Resolved]
